FAERS Safety Report 16017482 (Version 1)
Quarter: 2019Q1

REPORT INFORMATION
  Report Type: Spontaneous
  Country: JP (occurrence: JP)
  Receive Date: 20190228
  Receipt Date: 20190228
  Transmission Date: 20190418
  Serious: Yes (Other)
  Sender: FDA-Public Use
  Company Number: JP-PFIZER INC-2019082825

PATIENT
  Age: 70 Year
  Sex: Male

DRUGS (1)
  1. METHOTREXATE 200MG [Suspect]
     Active Substance: METHOTREXATE
     Dosage: UNK (HIGH DOSE)
     Route: 041
     Dates: start: 20190204

REACTIONS (2)
  - Blood creatinine increased [Not Recovered/Not Resolved]
  - Drug level increased [Unknown]

NARRATIVE: CASE EVENT DATE: 201902
